FAERS Safety Report 11656513 (Version 2)
Quarter: 2015Q4

REPORT INFORMATION
  Report Type: Spontaneous
  Country: US (occurrence: US)
  Receive Date: 20151023
  Receipt Date: 20151023
  Transmission Date: 20160304
  Serious: No
  Sender: FDA-Public Use
  Company Number: US-BAYER-2015-448957

PATIENT
  Age: 86 Year
  Sex: Female
  Weight: 65.76 kg

DRUGS (3)
  1. SYNTHROID [Concomitant]
     Active Substance: LEVOTHYROXINE SODIUM
  2. BAYER LOW DOSE [Concomitant]
     Active Substance: ASPIRIN
  3. CLARITIN REDITABS [Suspect]
     Active Substance: LORATADINE
     Indication: PRURITUS
     Dosage: 1 DF, QD
     Route: 048
     Dates: start: 201509

REACTIONS (2)
  - Product use issue [None]
  - Therapeutic response unexpected [None]

NARRATIVE: CASE EVENT DATE: 201509
